FAERS Safety Report 5333223-8 (Version None)
Quarter: 2007Q2

REPORT INFORMATION
  Report Type: 
  Country: None (occurrence: None)
  Receive Date: 20070521
  Receipt Date: 20070521
  Transmission Date: 20071010
  Serious: Yes (Hospitalization)
  Sender: FDA-Public Use
  Company Number: None

PATIENT
  Sex: Male
  Weight: 66.7 kg

DRUGS (17)
  1. CYCLOPHOSPHAMIDE [Suspect]
     Dosage: 1365 MG
  2. DOXIL [Suspect]
     Dosage: 73 MG
  3. NEULASTA [Suspect]
     Dosage: 6 MG
  4. PREDNISONE TAB [Suspect]
     Dosage: 80 MG
  5. RITUXIMAB (MOAB C2B8 ANTI CD20, CHIMERIC) [Suspect]
     Dosage: 683 MG
  6. VINCRISTINE SULFATE [Suspect]
     Dosage: 2 MG
  7. ACETAMINOPHEN [Concomitant]
  8. ATORVASTATIN [Concomitant]
  9. CLONAZEPAM [Concomitant]
  10. ESCITALOPRAM OXALATE [Concomitant]
  11. LOPERAMIDE HCL [Concomitant]
  12. ONDANSETRON [Concomitant]
  13. PANTOPRAZOLE SODIUM [Concomitant]
  14. PIPERACILLIN AND TAZOBACTAM [Concomitant]
  15. PROCHLORPERAZINE MALEATE [Concomitant]
  16. SENNOSIDES-DOCUSATE SODIUM [Concomitant]
  17. ZOLPIDEM TARTRATE [Concomitant]

REACTIONS (3)
  - CHEST X-RAY ABNORMAL [None]
  - COMPUTERISED TOMOGRAM ABNORMAL [None]
  - PYREXIA [None]
